FAERS Safety Report 4270562-6 (Version None)
Quarter: 2004Q1

REPORT INFORMATION
  Report Type: 
  Country: None (occurrence: None)
  Receive Date: 20040113
  Receipt Date: 20040113
  Transmission Date: 20041129
  Serious: No
  Sender: FDA-Public Use
  Company Number: None

PATIENT
  Sex: Female
  Weight: 62.1428 kg

DRUGS (4)
  1. PROTONIX [Suspect]
     Dosage: IVPB Q 12 H
     Route: 042
     Dates: start: 20040104, end: 20040106
  2. REGLAN [Concomitant]
  3. DEMEROL [Concomitant]
  4. ZOFRAN [Concomitant]

REACTIONS (2)
  - GRANULOCYTE COUNT DECREASED [None]
  - WHITE BLOOD CELL COUNT DECREASED [None]
